FAERS Safety Report 24573367 (Version 2)
Quarter: 2025Q1

REPORT INFORMATION
  Report Type: Spontaneous
  Country: US (occurrence: US)
  Receive Date: 20241102
  Receipt Date: 20250203
  Transmission Date: 20250409
  Serious: No
  Sender: AIMMUNE
  Company Number: US-AIMMUNE THERAPEUTICS, INC.-2024AIMT01408

PATIENT

DRUGS (2)
  1. VOWST [Suspect]
     Active Substance: DONOR HUMAN STOOL SPORES (ETHANOL TREATED)
     Indication: Clostridium difficile infection
     Dosage: 4 CAPSULES, 1X/DAY, ON AN EMPTY STOMACH
     Route: 048
     Dates: start: 20240910
  2. VOWST [Suspect]
     Active Substance: DONOR HUMAN STOOL SPORES (ETHANOL TREATED)
     Route: 048

REACTIONS (5)
  - Abdominal pain [Unknown]
  - Abnormal faeces [Unknown]
  - Musculoskeletal pain [Unknown]
  - Flatulence [Unknown]
  - Diarrhoea [Unknown]

NARRATIVE: CASE EVENT DATE: 20241001
